FAERS Safety Report 14609665 (Version 1)
Quarter: 2018Q1

REPORT INFORMATION
  Report Type: Spontaneous
  Country: US (occurrence: US)
  Receive Date: 20180307
  Receipt Date: 20180307
  Transmission Date: 20180509
  Serious: No
  Sender: FDA-Public Use
  Company Number: None

PATIENT
  Age: 66 Year
  Sex: Female
  Weight: 68.04 kg

DRUGS (9)
  1. CLOPIDOGREL [Concomitant]
     Active Substance: CLOPIDOGREL BISULFATE
  2. ASPIRIN. [Concomitant]
     Active Substance: ASPIRIN
  3. METFORMIN [Concomitant]
     Active Substance: METFORMIN HYDROCHLORIDE
  4. ACETAMINOPHEN ER [Concomitant]
     Active Substance: ACETAMINOPHEN
  5. ONE-A-DAY 65 + [Concomitant]
  6. METOPROLOL SUCC [Concomitant]
     Active Substance: METOPROLOL SUCCINATE
  7. ATORVASTATIN [Concomitant]
     Active Substance: ATORVASTATIN
  8. ISOSORBIDE MN [Suspect]
     Active Substance: ISOSORBIDE MONONITRATE
     Indication: CHEST PAIN
     Route: 048
     Dates: start: 20171018, end: 20171025
  9. BUPROPION. [Concomitant]
     Active Substance: BUPROPION

REACTIONS (6)
  - Bedridden [None]
  - Nausea [None]
  - Pain [None]
  - Posture abnormal [None]
  - Headache [None]
  - Flushing [None]

NARRATIVE: CASE EVENT DATE: 20171018
